FAERS Safety Report 8262986-7 (Version None)
Quarter: 2012Q2

REPORT INFORMATION
  Report Type: 
  Country: None (occurrence: None)
  Receive Date: 20120405
  Receipt Date: 20120403
  Transmission Date: 20120825
  Serious: Yes (Hospitalization, Other)
  Sender: FDA-Public Use
  Company Number: US-MERCK-1107USA03602

PATIENT
  Age: 63 Year
  Sex: Female
  Weight: 61 kg

DRUGS (1)
  1. FOSAMAX [Suspect]
     Indication: OSTEOPOROSIS
     Route: 048
     Dates: start: 20070101, end: 20110101

REACTIONS (19)
  - ABSCESS OF EYELID [None]
  - HYPERSENSITIVITY [None]
  - UTERINE DISORDER [None]
  - FALL [None]
  - FEMUR FRACTURE [None]
  - MUSCULOSKELETAL PAIN [None]
  - OSTEOARTHRITIS [None]
  - VERTIGO [None]
  - TONSILLAR DISORDER [None]
  - BREAST DISORDER [None]
  - CYSTOCELE [None]
  - CENTRAL OBESITY [None]
  - FURUNCLE [None]
  - THYROID NEOPLASM [None]
  - ADENOIDAL DISORDER [None]
  - PLANTAR FASCIITIS [None]
  - BLOOD CHOLESTEROL INCREASED [None]
  - EAR DISORDER [None]
  - URINARY TRACT INFECTION [None]
